FAERS Safety Report 10979223 (Version 1)
Quarter: 2015Q2

REPORT INFORMATION
  Report Type: Spontaneous
  Country: CA (occurrence: CA)
  Receive Date: 20150402
  Receipt Date: 20150402
  Transmission Date: 20150821
  Serious: Yes (Other)
  Sender: FDA-Public Use
  Company Number: CA-SA-2015SA040212

PATIENT
  Age: 67 Year

DRUGS (7)
  1. AVASTIN [Suspect]
     Active Substance: BEVACIZUMAB
     Indication: COLORECTAL CANCER METASTATIC
     Route: 065
     Dates: start: 20140415
  2. OXALIPLATIN. [Suspect]
     Active Substance: OXALIPLATIN
     Route: 065
  3. FOLINIC ACID [Suspect]
     Active Substance: LEUCOVORIN
     Route: 065
  4. FOLINIC ACID [Suspect]
     Active Substance: LEUCOVORIN
     Route: 065
     Dates: start: 20140415
  5. 5-FU [Suspect]
     Active Substance: FLUOROURACIL
     Route: 065
     Dates: start: 20140415
  6. 5-FU [Suspect]
     Active Substance: FLUOROURACIL
     Route: 065
  7. OXALIPLATIN. [Suspect]
     Active Substance: OXALIPLATIN
     Route: 065
     Dates: start: 20140415

REACTIONS (1)
  - Cerebrovascular accident [Unknown]
